FAERS Safety Report 7571955-1 (Version None)
Quarter: 2011Q2

REPORT INFORMATION
  Report Type: 
  Country: None (occurrence: None)
  Receive Date: 20110624
  Receipt Date: 20110406
  Transmission Date: 20111010
  Serious: No
  Sender: FDA-Public Use
  Company Number: A0921679A

PATIENT
  Age: 78 Year
  Sex: Female

DRUGS (4)
  1. VALIUM [Concomitant]
  2. ZANTAC [Concomitant]
  3. VERAMYST [Suspect]
     Dosage: 2PUFF PER DAY
     Route: 045
     Dates: start: 20100825, end: 20101101
  4. HIGH BLOOD PRESSURE PILL [Concomitant]

REACTIONS (1)
  - ORAL FUNGAL INFECTION [None]
